FAERS Safety Report 25443905 (Version 1)
Quarter: 2025Q2

REPORT INFORMATION
  Report Type: Report from Study
  Country: GB (occurrence: GB)
  Receive Date: 20250617
  Receipt Date: 20250617
  Transmission Date: 20250716
  Serious: Yes (Other)
  Sender: ABBVIE
  Company Number: GB-ABBVIE-6319009

PATIENT
  Age: 38 Year
  Sex: Male

DRUGS (1)
  1. SKYRIZI [Suspect]
     Active Substance: RISANKIZUMAB-RZAA
     Indication: Crohn^s disease
     Dosage: SKYRIZI 360MG/2.4ML SOLUTION, 1.00 EA
     Route: 058
     Dates: start: 20250103

REACTIONS (2)
  - Cardiac operation [Unknown]
  - Malaise [Unknown]

NARRATIVE: CASE EVENT DATE: 20250101
